FAERS Safety Report 7338957-1 (Version None)
Quarter: 2011Q1

REPORT INFORMATION
  Report Type: 
  Country: None (occurrence: None)
  Receive Date: 20110308
  Receipt Date: 20110223
  Transmission Date: 20110831
  Serious: Yes (Hospitalization)
  Sender: FDA-Public Use
  Company Number: FR-ELI_LILLY_AND_COMPANY-FR200804006098

PATIENT
  Sex: Male

DRUGS (5)
  1. CYMBALTA [Suspect]
     Indication: DIABETIC FOOT
     Dosage: 60 MG, DAILY (1/D)
     Route: 048
     Dates: start: 20080403, end: 20080407
  2. CORTICOSTEROIDS [Concomitant]
     Indication: SARCOIDOSIS
     Dosage: UNK, UNKNOWN
     Route: 065
  3. DUPHALAC [Concomitant]
     Indication: HEPATIC ENCEPHALOPATHY PROPHYLAXIS
     Dosage: UNK, UNKNOWN
     Route: 048
  4. IMMUNOSUPPRESSIVE AGENTS [Concomitant]
     Indication: SARCOIDOSIS
     Dosage: UNK, UNKNOWN
     Route: 065
  5. INSULIN [Concomitant]
     Indication: DIABETES MELLITUS
     Dosage: UNK, UNKNOWN
     Route: 058

REACTIONS (2)
  - HEPATIC ENCEPHALOPATHY [None]
  - DRUG PRESCRIBING ERROR [None]
